FAERS Safety Report 8914707 (Version 9)
Quarter: 2013Q3

REPORT INFORMATION
  Report Type: Report from Study
  Country: DE (occurrence: DE)
  Receive Date: 20121119
  Receipt Date: 20130927
  Transmission Date: 20140515
  Serious: Yes (Hospitalization)
  Sender: FDA-Public Use
  Company Number: DE-PFIZER INC-2012281182

PATIENT
  Age: 82 Year
  Sex: Female
  Weight: 70 kg

DRUGS (16)
  1. AXITINIB [Suspect]
     Indication: METASTATIC RENAL CELL CARCINOMA
     Dosage: 2 MG, 2X/DAY
     Route: 048
     Dates: start: 20090811, end: 20121005
  2. DICLOFENAC [Concomitant]
     Indication: OSTEOARTHRITIS
     Dosage: AS NEEDED
     Route: 061
     Dates: start: 20111012
  3. MICOTAR [Concomitant]
     Indication: SKIN FISSURES
     Dosage: AS NEEDED
     Route: 061
     Dates: start: 20110321
  4. MUCOFALK [Concomitant]
     Indication: DIARRHOEA
     Dosage: AS NEEDED
     Route: 048
     Dates: start: 20110215
  5. BROMAZANIL [Concomitant]
     Indication: TENSION
     Dosage: 1.5 MG, ONCE DAILY
     Route: 048
     Dates: start: 20101207
  6. LOPERAMIDE [Concomitant]
     Indication: DIARRHOEA
     Dosage: 2 MG, AS NEEDED
     Route: 048
     Dates: start: 20110215
  7. CA FIZZY [Concomitant]
     Indication: HYPOCALCAEMIA
     Dosage: 500 MG, AS NEEDED
     Route: 048
     Dates: start: 20101104
  8. ACETYLSALICYLIC ACID [Concomitant]
     Indication: CORONARY ARTERY DISEASE
     Dosage: 100 MG, ONCE DAILY
     Route: 048
     Dates: start: 20060115
  9. LERCANIDIPINE [Concomitant]
     Indication: HYPERTENSION
     Dosage: 10 MG, 2X/DAY
     Route: 048
     Dates: start: 20120809
  10. RAMIPRIL [Concomitant]
     Indication: HYPERTENSION
     Dosage: 20 MG DAILY
     Route: 048
     Dates: start: 200406
  11. METOPROLOL [Concomitant]
     Indication: HYPERTENSION
     Dosage: 200 MG, ONCE DAILY
     Route: 048
     Dates: start: 20040615
  12. L-THYROX [Concomitant]
     Indication: HYPOTHYROIDISM
     Dosage: 75 UG, ONCE DAILY
     Route: 048
     Dates: start: 20120615
  13. PLAVIX [Concomitant]
     Indication: CORONARY ARTERY DISEASE
     Dosage: 75 MG, 1X/DAY
     Route: 048
     Dates: start: 20061219
  14. CALCIVIT D [Concomitant]
     Indication: HYPOCALCAEMIA
     Dosage: 1 DF, 1X/DAY
     Route: 048
     Dates: start: 20101104
  15. NOVOTHYRAL [Concomitant]
     Indication: HYPOTHYROIDISM
     Dosage: 50 UG, 1X/DAY
     Route: 048
     Dates: start: 20120615
  16. PANTOZOL [Concomitant]
     Indication: PROPHYLAXIS
     Dosage: 40 MG, 1X/DAY
     Route: 048
     Dates: start: 20090215

REACTIONS (1)
  - General physical health deterioration [Recovered/Resolved]
